FAERS Safety Report 15670990 (Version 3)
Quarter: 2018Q4

REPORT INFORMATION
  Report Type: Spontaneous
  Country: US (occurrence: US)
  Receive Date: 20181129
  Receipt Date: 20181205
  Transmission Date: 20190205
  Serious: Yes (Hospitalization, Other)
  Sender: FDA-Public Use
  Company Number: US-PFIZER INC-2018488456

PATIENT
  Age: 23 Year
  Sex: Female

DRUGS (1)
  1. IDARUBICIN HCL [Suspect]
     Active Substance: IDARUBICIN HYDROCHLORIDE
     Indication: LEUKAEMIA
     Dosage: UNK (DOUBLE DOSE IN AUGUST)

REACTIONS (6)
  - Abdominal discomfort [Unknown]
  - Wrong dose [Unknown]
  - Muscle haemorrhage [Unknown]
  - Ejection fraction [Recovering/Resolving]
  - Pain in extremity [Unknown]
  - Dysuria [Unknown]

NARRATIVE: CASE EVENT DATE: 2018
